FAERS Safety Report 12665861 (Version 2)
Quarter: 2016Q3

REPORT INFORMATION
  Report Type: Spontaneous
  Country: BR (occurrence: BR)
  Receive Date: 20160818
  Receipt Date: 20160927
  Transmission Date: 20161109
  Serious: No
  Sender: FDA-Public Use
  Company Number: BR-ELI_LILLY_AND_COMPANY-BR201607002560

PATIENT
  Sex: Male

DRUGS (5)
  1. DORFLEX [Concomitant]
     Active Substance: CAFFEINE\DIPYRONE\ORPHENADRINE
     Indication: MYALGIA
     Dosage: UNK, UNKNOWN
     Route: 065
  2. OMEPRAZOL                          /00661201/ [Concomitant]
     Active Substance: OMEPRAZOLE
     Indication: GASTRITIS
     Dosage: UNK, UNKNOWN
     Route: 065
  3. HORSE CHESTNUT EXTRACT [Concomitant]
     Active Substance: HORSE CHESTNUT
     Indication: HAEMORRHOIDS
     Dosage: UNK, UNKNOWN
     Route: 065
  4. CIALIS [Suspect]
     Active Substance: TADALAFIL
     Indication: ERECTILE DYSFUNCTION
     Dosage: 5 MG, EACH EVENING
     Route: 048
     Dates: end: 20160717
  5. CIALIS [Suspect]
     Active Substance: TADALAFIL
     Indication: BLOOD DISORDER
     Dosage: 5 MG, EACH EVENING
     Route: 048
     Dates: end: 20160821

REACTIONS (13)
  - Nasal mucosal disorder [Unknown]
  - Drug dose omission [Unknown]
  - Back pain [Not Recovered/Not Resolved]
  - Arthralgia [Unknown]
  - Headache [Unknown]
  - Hypoacusis [Not Recovered/Not Resolved]
  - Visual impairment [Unknown]
  - Epistaxis [Unknown]
  - Eye discharge [Unknown]
  - Myalgia [Unknown]
  - Tinnitus [Not Recovered/Not Resolved]
  - Nasal congestion [Unknown]
  - Vision blurred [Unknown]

NARRATIVE: CASE EVENT DATE: 2014
